FAERS Safety Report 10934396 (Version 1)
Quarter: 2015Q1

REPORT INFORMATION
  Report Type: Spontaneous
  Country: US (occurrence: US)
  Receive Date: 20150320
  Receipt Date: 20150320
  Transmission Date: 20150721
  Serious: Yes (Death)
  Sender: FDA-Public Use
  Company Number: US-JNJFOC-20150311873

PATIENT
  Age: 68 Year
  Sex: Male

DRUGS (1)
  1. INVOKANA [Suspect]
     Active Substance: CANAGLIFLOZIN
     Indication: BLOOD GLUCOSE DECREASED
     Route: 048
     Dates: start: 20140201, end: 20140513

REACTIONS (2)
  - Cardiac arrest [Fatal]
  - Colonoscopy [Unknown]

NARRATIVE: CASE EVENT DATE: 20140513
